FAERS Safety Report 7607341-5 (Version None)
Quarter: 2011Q3

REPORT INFORMATION
  Report Type: 
  Country: None (occurrence: None)
  Receive Date: 20110712
  Receipt Date: 20110712
  Transmission Date: 20111222
  Serious: No
  Sender: FDA-Public Use
  Company Number: None

PATIENT
  Age: 54 Year
  Sex: Male
  Weight: 61.2356 kg

DRUGS (1)
  1. FLUORESCEIN SODIUM [Suspect]
     Dosage: 5ML UD IV
     Route: 042
     Dates: start: 20110419, end: 20110419

REACTIONS (2)
  - URTICARIA [None]
  - RASH [None]
